FAERS Safety Report 5809878-8 (Version None)
Quarter: 2008Q3

REPORT INFORMATION
  Report Type: 
  Country: None (occurrence: None)
  Receive Date: 20080715
  Receipt Date: 20080704
  Transmission Date: 20090109
  Serious: Yes (Hospitalization)
  Sender: FDA-Public Use
  Company Number: BR-JNJFOC-20080701368

PATIENT
  Sex: Female
  Weight: 55 kg

DRUGS (1)
  1. IMOSEC [Suspect]
     Indication: DIARRHOEA
     Dosage: TOOK 12 TABLETS DRUING TREATMENT DATES

REACTIONS (2)
  - DEHYDRATION [None]
  - DRUG INEFFECTIVE [None]
